FAERS Safety Report 21199813 (Version 2)
Quarter: 2022Q3

REPORT INFORMATION
  Report Type: Spontaneous
  Country: IN (occurrence: IN)
  Receive Date: 20220811
  Receipt Date: 20220819
  Transmission Date: 20221027
  Serious: Yes (Hospitalization, Other)
  Sender: FDA-Public Use
  Company Number: None

PATIENT
  Age: 38 Year
  Sex: Male

DRUGS (2)
  1. PREDNISOLONE [Suspect]
     Active Substance: PREDNISOLONE
     Indication: Arthralgia
     Dosage: 60 MILLIGRAM PER DAY
     Route: 048
  2. PREDNISOLONE [Suspect]
     Active Substance: PREDNISOLONE
     Dosage: UNK TAPERED
     Route: 048

REACTIONS (7)
  - Duodenitis [Recovered/Resolved]
  - Eosinophil count decreased [Recovered/Resolved]
  - Intussusception [Recovered/Resolved]
  - Abdominal lymphadenopathy [Recovered/Resolved]
  - Gastritis [Recovered/Resolved]
  - Body tinea [Recovered/Resolved]
  - Strongyloidiasis [Recovered/Resolved]
